FAERS Safety Report 15993312 (Version 2)
Quarter: 2023Q4

REPORT INFORMATION
  Report Type: Spontaneous
  Country: CA (occurrence: CA)
  Receive Date: 20190222
  Receipt Date: 20231128
  Transmission Date: 20240110
  Serious: Yes (Life-Threatening, Other)
  Sender: FDA-Public Use
  Company Number: CA-009507513-1902CAN008193

PATIENT
  Age: 77 Year
  Sex: Male
  Weight: 93 kg

DRUGS (6)
  1. CUBICIN [Suspect]
     Active Substance: DAPTOMYCIN
     Indication: Medical device site joint infection
     Dosage: 1.0 GRAM, 1 EVERY 1 DAY(S)
     Route: 042
     Dates: start: 20180202, end: 20180228
  2. CUBICIN [Suspect]
     Active Substance: DAPTOMYCIN
     Indication: Enterococcal infection
  3. AMLODIPINE [Concomitant]
     Active Substance: AMLODIPINE BESYLATE
     Dosage: UNK
     Route: 065
  4. INSULIN NOS [Concomitant]
     Active Substance: INSULIN NOS
     Dosage: UNK
     Route: 065
  5. RAMIPRIL [Concomitant]
     Active Substance: RAMIPRIL
     Dosage: UNK
     Route: 065
  6. ROSUVASTATIN [Concomitant]
     Active Substance: ROSUVASTATIN
     Dosage: UNK
     Route: 065

REACTIONS (6)
  - Computerised tomogram thorax abnormal [Recovered/Resolved]
  - Eosinophil count increased [Recovered/Resolved]
  - Lung consolidation [Recovered/Resolved]
  - Necrotising soft tissue infection [Recovered/Resolved]
  - Pneumonia [Recovered/Resolved]
  - Lung opacity [Recovered/Resolved]

NARRATIVE: CASE EVENT DATE: 20180220
